FAERS Safety Report 7943567-9 (Version None)
Quarter: 2011Q4

REPORT INFORMATION
  Report Type: 
  Country: None (occurrence: None)
  Receive Date: 20111128
  Receipt Date: 20111121
  Transmission Date: 20120403
  Serious: Yes (Other)
  Sender: FDA-Public Use
  Company Number: PHHY2011GB101893

PATIENT
  Age: 40 Year
  Sex: Female
  Weight: 52 kg

DRUGS (3)
  1. NORDETTE-28 [Suspect]
     Dosage: 1 DF, QD
     Route: 048
  2. AMOXICILLIN [Suspect]
     Indication: TOOTH INFECTION
     Dosage: 250 MG, TID
     Route: 048
     Dates: start: 20110803, end: 20110818
  3. VENTOLIN [Concomitant]

REACTIONS (1)
  - PREGNANCY ON ORAL CONTRACEPTIVE [None]
